FAERS Safety Report 9539147 (Version 1)
Quarter: 2013Q3

REPORT INFORMATION
  Report Type: Spontaneous
  Country: BR (occurrence: BR)
  Receive Date: 20130920
  Receipt Date: 20130920
  Transmission Date: 20140515
  Serious: Yes (Other)
  Sender: FDA-Public Use
  Company Number: BR-SANOFI-AVENTIS-2013SA091345

PATIENT
  Age: 56 Year
  Sex: Male
  Weight: 73 kg

DRUGS (12)
  1. LANTUS SOLOSTAR [Suspect]
     Indication: TYPE 2 DIABETES MELLITUS
     Route: 058
     Dates: start: 2012
  2. ATENOLOL [Concomitant]
     Indication: HYPERTENSION
     Dosage: STRENGTH: 40 MG
     Route: 048
  3. LIPLESS [Concomitant]
     Indication: BLOOD CHOLESTEROL
     Dosage: STRENGTH: 100 MG
     Route: 048
  4. CRESTOR [Concomitant]
     Indication: BLOOD CHOLESTEROL
     Dosage: STRENGTH: 40 MG
     Route: 048
  5. ISCOVER [Concomitant]
     Indication: ANTICOAGULANT THERAPY
     Route: 048
  6. SUSTRATE [Concomitant]
     Indication: CARDIAC DISORDER
     Route: 048
  7. SOMALGIN CARDIO [Concomitant]
     Indication: CARDIAC DISORDER
     Dosage: STRENGTH: 100 MG
     Route: 048
  8. SELOZOK [Concomitant]
     Indication: ARRHYTHMIA
     Dosage: STRENGTH: 20 MG
     Route: 048
  9. PANTOPRAZOLE [Concomitant]
     Indication: GASTRIC DISORDER
     Route: 048
  10. METFORMIN [Concomitant]
     Indication: DIABETES MELLITUS
     Dosage: STRENGTH: 850 MG
     Route: 048
  11. ARADOIS [Concomitant]
     Indication: HYPERTENSION
     Dosage: STRENGTH: 100 MG
     Route: 048
  12. SOLOSTAR [Concomitant]
     Dates: start: 2012

REACTIONS (3)
  - Infarction [Unknown]
  - Chest pain [Unknown]
  - Injection site pain [Not Recovered/Not Resolved]
